FAERS Safety Report 7922690-9 (Version None)
Quarter: 2011Q4

REPORT INFORMATION
  Report Type: 
  Country: None (occurrence: None)
  Receive Date: 20111117
  Receipt Date: 20110324
  Transmission Date: 20120403
  Serious: No
  Sender: FDA-Public Use
  Company Number: US-ALLERGAN-1104233US

PATIENT
  Age: 71 Year
  Sex: Male

DRUGS (3)
  1. COMBIGAN [Suspect]
     Dosage: 1 GTT, BID
     Route: 047
     Dates: end: 20110308
  2. COMBIGAN [Suspect]
     Indication: INTRAOCULAR PRESSURE INCREASED
     Dosage: 1 GTT, BID
     Dates: start: 20110319, end: 20110321
  3. REFRESH [Concomitant]
     Dosage: UNK
     Dates: start: 20110308

REACTIONS (4)
  - EYELID IRRITATION [None]
  - EYE PRURITUS [None]
  - SCLERAL HYPERAEMIA [None]
  - LACRIMATION INCREASED [None]
